FAERS Safety Report 5132641-0 (Version None)
Quarter: 2006Q4

REPORT INFORMATION
  Report Type: 
  Country: None (occurrence: None)
  Receive Date: 20061017
  Receipt Date: 20061006
  Transmission Date: 20070319
  Serious: Yes (Life-Threatening)
  Sender: FDA-Public Use
  Company Number: PHFR2006GB02934

PATIENT
  Age: 61 Year
  Sex: Female

DRUGS (4)
  1. DICLOFENAC SODIUM [Suspect]
     Indication: ARTHRITIS
     Dosage: 50 MG, TID, ORAL
     Route: 048
     Dates: start: 20020101
  2. ASPIRIN [Suspect]
     Indication: MYOCARDIAL INFARCTION
     Dosage: 75 MG, QD, ORAL
     Route: 048
     Dates: start: 20030101
  3. ATENOLOL [Concomitant]
  4. PERINDOPRIL ERBUMINE [Concomitant]

REACTIONS (1)
  - DUODENAL ULCER PERFORATION [None]
